FAERS Safety Report 9214755 (Version 2)
Quarter: 2013Q4

REPORT INFORMATION
  Report Type: Spontaneous
  Country: US (occurrence: US)
  Receive Date: 20130405
  Receipt Date: 20131218
  Transmission Date: 20140711
  Serious: Yes (Other)
  Sender: FDA-Public Use
  Company Number: US-BAYER-2013-041126

PATIENT
  Age: 27 Year
  Sex: Female

DRUGS (13)
  1. YAZ [Suspect]
     Indication: ACNE
  2. YASMIN [Suspect]
     Indication: ACNE
  3. OCELLA [Suspect]
     Indication: ACNE
  4. IBUPROFEN [Concomitant]
     Dosage: 800 MG, UNK
     Dates: start: 20090726
  5. ACETAMINOPHEN + COD. PHOSP. [Concomitant]
     Dosage: UNK
     Dates: start: 20090726
  6. DOCUSATE SODIUM [Concomitant]
     Dosage: 100 MG, UNK
     Dates: start: 20090801
  7. ONDANSETRON HYDROCHLORIDE [Concomitant]
     Dosage: 4 MG, UNK
     Dates: start: 20090801
  8. ALBENZA [Concomitant]
     Dosage: 200 MG, UNK
  9. COLACE [Concomitant]
     Dosage: UNK
     Dates: start: 20090812
  10. MIRALAX [Concomitant]
     Dosage: UNK
     Dates: start: 20090812
  11. BENADRYL [Concomitant]
     Dosage: UNK
     Dates: start: 20090812
  12. POLYETHYLENE GLYCOL 3350 [Concomitant]
     Dosage: UNK
     Dates: start: 20090814
  13. DICYCLOMINE [Concomitant]
     Dosage: 20 MG, UNK
     Dates: start: 20090820

REACTIONS (3)
  - Cholecystitis [None]
  - Injury [None]
  - Pain [None]
